FAERS Safety Report 9677960 (Version 3)
Quarter: 2014Q4

REPORT INFORMATION
  Report Type: Spontaneous
  Country: JP (occurrence: JP)
  Receive Date: 20131108
  Receipt Date: 20141108
  Transmission Date: 20150529
  Serious: Yes (Other)
  Sender: FDA-Public Use
  Company Number: JP-ASTRAZENECA-2013SE80482

PATIENT
  Age: 40 Year
  Sex: Female

DRUGS (2)
  1. PROPOFOL (NON AZ PRODUCT) [Suspect]
     Active Substance: PROPOFOL
     Indication: INDUCTION OF ANAESTHESIA
     Dosage: DOSE UNKNOWN
     Route: 042
  2. SUXAMETHONIUM [Concomitant]
     Active Substance: SUCCINYLCHOLINE
     Dosage: DOSE UNKNOWN
     Route: 065

REACTIONS (4)
  - Pituitary haemorrhage [Unknown]
  - Pituitary tumour benign [Unknown]
  - Depressed level of consciousness [Unknown]
  - Tonic convulsion [Recovered/Resolved]
